FAERS Safety Report 5438982-1 (Version None)
Quarter: 2007Q3

REPORT INFORMATION
  Report Type: 
  Country: None (occurrence: None)
  Receive Date: 20070831
  Receipt Date: 20070823
  Transmission Date: 20080115
  Serious: No
  Sender: FDA-Public Use
  Company Number: A0674371A

PATIENT

DRUGS (1)
  1. ALLI [Suspect]

REACTIONS (12)
  - DEHYDRATION [None]
  - DYSMENORRHOEA [None]
  - FLATULENCE [None]
  - GASTROINTESTINAL DISORDER [None]
  - GASTROINTESTINAL SOUNDS ABNORMAL [None]
  - HEADACHE [None]
  - HUNGER [None]
  - INFLUENZA [None]
  - MALAISE [None]
  - NERVOUSNESS [None]
  - RECTAL DISCHARGE [None]
  - WEIGHT INCREASED [None]
